FAERS Safety Report 7240564-6 (Version None)
Quarter: 2011Q1

REPORT INFORMATION
  Report Type: 
  Country: None (occurrence: None)
  Receive Date: 20110120
  Receipt Date: 20110120
  Transmission Date: 20110831
  Serious: Yes (Other)
  Sender: FDA-Public Use
  Company Number: None

PATIENT
  Sex: Female
  Weight: 54.4316 kg

DRUGS (1)
  1. ZYCLARA [Suspect]
     Indication: ACTINIC KERATOSIS
     Dosage: DAILY FOR 2 WEEKS
     Dates: start: 20101222

REACTIONS (7)
  - SKIN EXFOLIATION [None]
  - APPLICATION SITE SWELLING [None]
  - HEADACHE [None]
  - ERYTHEMA [None]
  - FEAR [None]
  - SCAB [None]
  - APPLICATION SITE INFLAMMATION [None]
